FAERS Safety Report 9860987 (Version 2)
Quarter: 2014Q1

REPORT INFORMATION
  Report Type: Spontaneous
  Country: FR (occurrence: FR)
  Receive Date: 20140202
  Receipt Date: 20140202
  Transmission Date: 20141002
  Serious: No
  Sender: FDA-Public Use
  Company Number: FR-ALLERGAN-1303134US

PATIENT
  Age: 6 Year
  Sex: Male

DRUGS (2)
  1. BOTOX [Suspect]
     Indication: CEREBRAL PALSY
     Dosage: 60 UNITS, SINGLE
     Route: 030
     Dates: start: 20090330, end: 20090330
  2. BOTOX [Suspect]
     Dosage: 50 UNITS, SINGLE
     Route: 030
     Dates: start: 20091105, end: 20091105

REACTIONS (2)
  - Decreased appetite [Recovered/Resolved]
  - Dysphagia [Recovered/Resolved]
